FAERS Safety Report 4748229-7 (Version None)
Quarter: 2005Q3

REPORT INFORMATION
  Report Type: 
  Country: None (occurrence: None)
  Receive Date: 20050818
  Receipt Date: 20050613
  Transmission Date: 20060218
  Serious: Yes (Other)
  Sender: FDA-Public Use
  Company Number: PHEH2005US06644

PATIENT
  Sex: Male

DRUGS (1)
  1. ZOMETA [Suspect]
     Indication: MULTIPLE MYELOMA
     Dosage: RADIATION THERAPY TO HEAD AND NECK
     Dates: start: 20031101

REACTIONS (7)
  - ASEPTIC NECROSIS BONE [None]
  - BONE DISORDER [None]
  - IMPAIRED HEALING [None]
  - MALIGNANT NEOPLASM PROGRESSION [None]
  - MULTIPLE MYELOMA [None]
  - SOFT TISSUE INFECTION [None]
  - STAPHYLOCOCCAL INFECTION [None]
